FAERS Safety Report 5321623-1 (Version None)
Quarter: 2007Q1

REPORT INFORMATION
  Report Type: 
  Country: None (occurrence: None)
  Receive Date: 20070220
  Receipt Date: 20070102
  Transmission Date: 20070707
  Serious: No
  Sender: FDA-Public Use
  Company Number: TPA2006A02271

PATIENT
  Sex: Female

DRUGS (1)
  1. ROZEREM [Suspect]
     Dosage: 8 MG, ONCE, PER ORAL
     Route: 048

REACTIONS (4)
  - DRUG EFFECT PROLONGED [None]
  - INITIAL INSOMNIA [None]
  - POOR QUALITY SLEEP [None]
  - SOMNOLENCE [None]
